FAERS Safety Report 9924453 (Version 3)
Quarter: 2014Q2

REPORT INFORMATION
  Report Type: Spontaneous
  Country: US (occurrence: US)
  Receive Date: 20140226
  Receipt Date: 20140401
  Transmission Date: 20141212
  Serious: Yes (Hospitalization)
  Sender: FDA-Public Use
  Company Number: US-ROCHE-1352864

PATIENT
  Age: 67 Year
  Sex: Male
  Weight: 70.37 kg

DRUGS (4)
  1. LDE225 [Suspect]
     Indication: BASAL CELL CARCINOMA
     Dosage: LAST DOSE PRIOR TO ADVERSE EVENT: 24/NOV/2013 (PRESUMED).
     Route: 065
     Dates: start: 20121113
  2. PRADAXA [Concomitant]
     Indication: CEREBROVASCULAR ACCIDENT
     Route: 065
     Dates: start: 20121024, end: 20130325
  3. PRADAXA [Concomitant]
     Indication: THROMBOSIS PROPHYLAXIS
     Route: 048
     Dates: start: 20131127, end: 20131129
  4. PRAVASTATIN [Concomitant]
     Indication: CARDIOVASCULAR EVENT PROPHYLAXIS
     Route: 065
     Dates: start: 20120727, end: 20131124

REACTIONS (1)
  - Cerebrovascular accident [Recovered/Resolved with Sequelae]
